FAERS Safety Report 5333575-9 (Version None)
Quarter: 2007Q2

REPORT INFORMATION
  Report Type: 
  Country: None (occurrence: None)
  Receive Date: 20070308
  Receipt Date: 20061114
  Transmission Date: 20071010
  Serious: No
  Sender: FDA-Public Use
  Company Number: 2006-BP-13293BP

PATIENT
  Age: 78 Year
  Sex: Female

DRUGS (4)
  1. SPIRIVA [Suspect]
     Dosage: 18 MCG (19 MCG, 1 IN 1 D) IH
     Route: 055
     Dates: start: 20040601
  2. LIPITOR [Concomitant]
  3. MAXIDE (ALL OTHER THERAPEUTIC PRODUCTS) [Concomitant]
  4. METOPROLOL TARTRATE [Concomitant]

REACTIONS (1)
  - ALOPECIA [None]
